FAERS Safety Report 4809246-1 (Version None)
Quarter: 2005Q4

REPORT INFORMATION
  Report Type: 
  Country: None (occurrence: None)
  Receive Date: 20051025
  Receipt Date: 20051013
  Transmission Date: 20060501
  Serious: Yes (Hospitalization, Other)
  Sender: FDA-Public Use
  Company Number: CH-BRISTOL-MYERS SQUIBB COMPANY-13144712

PATIENT
  Age: 58 Year
  Sex: Male

DRUGS (12)
  1. MAXIPIME [Suspect]
     Indication: ACUTE LYMPHOCYTIC LEUKAEMIA
     Route: 042
     Dates: start: 20050729, end: 20050817
  2. FUNGIZONE [Suspect]
     Route: 042
     Dates: start: 20050809, end: 20050815
  3. BACTRIM DS [Suspect]
     Indication: ACUTE LYMPHOCYTIC LEUKAEMIA
     Route: 048
     Dates: start: 20050714, end: 20050729
  4. BACTRIM DS [Suspect]
     Indication: ACUTE LYMPHOCYTIC LEUKAEMIA
     Route: 042
     Dates: start: 20050730, end: 20050831
  5. ASPARAGINASE [Suspect]
     Indication: ACUTE LYMPHOCYTIC LEUKAEMIA
     Route: 042
     Dates: start: 20050802, end: 20050808
  6. CERUBIDINE [Suspect]
     Indication: ACUTE LYMPHOCYTIC LEUKAEMIA
     Route: 042
     Dates: start: 20050801, end: 20050802
  7. ENDOXAN [Suspect]
     Indication: ACUTE LYMPHOCYTIC LEUKAEMIA
     Route: 042
     Dates: start: 20050801, end: 20050802
  8. ONCOVIN [Suspect]
     Indication: ACUTE LYMPHOCYTIC LEUKAEMIA
     Route: 042
     Dates: start: 20050801, end: 20050802
  9. CANCIDAS [Suspect]
     Route: 042
     Dates: start: 20050811, end: 20050826
  10. TIENAM [Suspect]
     Dates: start: 20050818, end: 20050831
  11. ACYCLOVIR [Suspect]
     Dates: start: 20050819, end: 20050822
  12. FLAGYL [Suspect]
     Dates: start: 20050826, end: 20050831

REACTIONS (5)
  - FIBROSIS [None]
  - HEPATIC SIDEROSIS [None]
  - HEPATIC STEATOSIS [None]
  - HEPATITIS CHOLESTATIC [None]
  - HEPATOMEGALY [None]
